FAERS Safety Report 9522718 (Version 1)
Quarter: 2013Q3

REPORT INFORMATION
  Report Type: Spontaneous
  Country: US (occurrence: US)
  Receive Date: 20130913
  Receipt Date: 20130913
  Transmission Date: 20140515
  Serious: No
  Sender: FDA-Public Use
  Company Number: US-BAYER-2013-110958

PATIENT
  Sex: 0

DRUGS (3)
  1. BAYER GENUINE ASPIRIN ORIGINAL STRENGTH [Suspect]
     Dosage: UNK
  2. ALEVE CAPLET [Suspect]
  3. IBUPROFEN [IBUPROFEN] [Suspect]
     Dosage: UNK

REACTIONS (1)
  - Drug hypersensitivity [None]
